FAERS Safety Report 21136149 (Version 1)
Quarter: 2022Q3

REPORT INFORMATION
  Report Type: Report from Study
  Country: US (occurrence: US)
  Receive Date: 20220727
  Receipt Date: 20220727
  Transmission Date: 20221026
  Serious: Yes (Hospitalization, Other)
  Sender: FDA-Public Use
  Company Number: US-NOVARTISPH-NVSC2022US128930

PATIENT
  Age: 72 Year
  Sex: Male

DRUGS (14)
  1. ENTRESTO [Suspect]
     Active Substance: SACUBITRIL\VALSARTAN
     Indication: Product used for unknown indication
     Dosage: 1 DOSAGE FORM, BID (24/26MG)
     Route: 048
  2. ENTRESTO [Suspect]
     Active Substance: SACUBITRIL\VALSARTAN
     Dosage: UNK
     Route: 065
     Dates: start: 20211011, end: 20220707
  3. ALLOPURINOL [Concomitant]
     Active Substance: ALLOPURINOL
     Indication: Product used for unknown indication
     Dosage: 1 DOSAGE FORM, QD
     Route: 048
     Dates: start: 20220707
  4. ELIQUIS [Concomitant]
     Active Substance: APIXABAN
     Indication: Product used for unknown indication
     Dosage: 1 DOSAGE FORM, BID
     Route: 048
     Dates: start: 20220301
  5. ATORVASTATIN [Concomitant]
     Active Substance: ATORVASTATIN
     Indication: Product used for unknown indication
     Dosage: 2 DOSAGE FORM (AT BED TIME) (20MG)
     Route: 048
  6. ATORVASTATIN [Concomitant]
     Active Substance: ATORVASTATIN
     Dosage: 1 DOSAGE FORM, QD (80 MG)
     Route: 048
     Dates: start: 20220707
  7. PLAVIX [Concomitant]
     Active Substance: CLOPIDOGREL BISULFATE
     Indication: Product used for unknown indication
     Dosage: 1 DOSAGE FORM, QD
     Route: 048
     Dates: start: 20211221
  8. ISOSORBIDE MONONITRATE [Concomitant]
     Active Substance: ISOSORBIDE MONONITRATE
     Indication: Product used for unknown indication
     Dosage: 1.5 DOSAGE FORM, BID (EXTENDED RELEASE TABLET 24HR)
     Route: 048
     Dates: start: 20211018
  9. METOPROLOL [Concomitant]
     Active Substance: METOPROLOL
     Indication: Product used for unknown indication
     Dosage: 1 DOSAGE FORM, BID (EXTENDED RELEASE 24HR)
     Route: 048
     Dates: start: 20220503
  10. TORSEMIDE [Concomitant]
     Active Substance: TORSEMIDE
     Indication: Product used for unknown indication
     Dosage: 1 DOSAGE FORM, QD
     Route: 048
  11. TORSEMIDE [Concomitant]
     Active Substance: TORSEMIDE
     Dosage: 1 DOSAGE FORM, BID (AS DIRECTED)
     Route: 048
     Dates: start: 20220518
  12. HYDRALAZINE [Concomitant]
     Active Substance: HYDRALAZINE HYDROCHLORIDE
     Indication: Product used for unknown indication
     Dosage: 1 DOSAGE FORM, BID
     Route: 048
     Dates: start: 20220707
  13. MORPHINE [Concomitant]
     Active Substance: MORPHINE
     Indication: Product used for unknown indication
     Dosage: UNK (CONCENTRATE 100MG/5ML)
     Route: 048
     Dates: start: 20220513
  14. DAPAGLIFLOZIN [Concomitant]
     Active Substance: DAPAGLIFLOZIN
     Indication: Product used for unknown indication
     Dosage: UNK
     Route: 065

REACTIONS (29)
  - Chest pain [Unknown]
  - Dyspnoea [Unknown]
  - Left ventricular failure [Unknown]
  - Respiratory distress [Unknown]
  - Chronic kidney disease [Unknown]
  - Cardiomyopathy [Unknown]
  - Atrial fibrillation [Unknown]
  - Basal cell carcinoma [Unknown]
  - Malignant melanoma [Unknown]
  - Type 2 diabetes mellitus [Unknown]
  - Arteriosclerosis coronary artery [Unknown]
  - Pulmonary oedema [Unknown]
  - Gait disturbance [Unknown]
  - Sleep apnoea syndrome [Unknown]
  - Dysuria [Unknown]
  - Palpitations [Unknown]
  - Peripheral vascular disorder [Unknown]
  - Gastrooesophageal reflux disease [Unknown]
  - Pleural effusion [Unknown]
  - Dyslipidaemia [Unknown]
  - Hyperlipidaemia [Unknown]
  - Snoring [Unknown]
  - Depression [Unknown]
  - Hypertension [Unknown]
  - Anxiety [Unknown]
  - Activated partial thromboplastin time prolonged [Unknown]
  - Amnesia [Unknown]
  - Cardiomegaly [Unknown]
  - Fatigue [Unknown]

NARRATIVE: CASE EVENT DATE: 20211205
